FAERS Safety Report 9538570 (Version 1)
Quarter: 2013Q3

REPORT INFORMATION
  Report Type: Spontaneous
  Country: US (occurrence: US)
  Receive Date: 20130920
  Receipt Date: 20130920
  Transmission Date: 20140515
  Serious: Yes (Hospitalization)
  Sender: FDA-Public Use
  Company Number: US-PERRIGO-13US009310

PATIENT
  Age: 43 Year
  Sex: Female

DRUGS (2)
  1. LOPERAMIDE HYDROCHLORIDE [Suspect]
     Indication: DRUG ABUSE
     Dosage: 280 MG, QD
     Route: 048
  2. LOPERAMIDE HYDROCHLORIDE [Suspect]
     Indication: INTENTIONAL OVERDOSE

REACTIONS (3)
  - Intentional overdose [Recovered/Resolved]
  - Syncope [Recovered/Resolved]
  - Ventricular tachycardia [Recovered/Resolved]
